FAERS Safety Report 7769115-4 (Version None)
Quarter: 2011Q3

REPORT INFORMATION
  Report Type: 
  Country: None (occurrence: None)
  Receive Date: 20110922
  Receipt Date: 20110427
  Transmission Date: 20111222
  Serious: No
  Sender: FDA-Public Use
  Company Number: US-ASTRAZENECA-2010SE32394

PATIENT
  Age: 46 Year
  Sex: Male
  Weight: 83.9 kg

DRUGS (8)
  1. SEROQUEL [Suspect]
     Route: 048
  2. SEROQUEL [Suspect]
     Route: 048
     Dates: start: 20100101
  3. SEROQUEL [Suspect]
     Route: 048
     Dates: start: 20100101
  4. SEROQUEL [Suspect]
     Indication: BIPOLAR DISORDER
     Route: 048
     Dates: start: 20100709
  5. SEROQUEL [Suspect]
     Route: 048
  6. SEROQUEL [Suspect]
     Indication: AGGRESSION
     Route: 048
     Dates: start: 20100709
  7. SEROQUEL [Suspect]
     Route: 048
  8. SEROQUEL [Suspect]
     Route: 048

REACTIONS (9)
  - ANXIETY [None]
  - INSOMNIA [None]
  - MANIA [None]
  - THERAPEUTIC RESPONSE UNEXPECTED [None]
  - ILLUSION [None]
  - TACHYCARDIA [None]
  - FEELING ABNORMAL [None]
  - HALLUCINATION [None]
  - DRUG DOSE OMISSION [None]
